FAERS Safety Report 7206330-2 (Version None)
Quarter: 2011Q1

REPORT INFORMATION
  Report Type: 
  Country: None (occurrence: None)
  Receive Date: 20110103
  Receipt Date: 20110103
  Transmission Date: 20110831
  Serious: Yes (Death, Hospitalization)
  Sender: FDA-Public Use
  Company Number: PHHO2008DE02563

PATIENT
  Sex: Male
  Weight: 66 kg

DRUGS (1)
  1. CERTICAN [Suspect]
     Indication: CONGENITAL CYSTIC KIDNEY DISEASE
     Dosage: UNK
     Route: 048
     Dates: start: 20070313, end: 20080104

REACTIONS (16)
  - RESPIRATORY FAILURE [None]
  - CARDIAC FAILURE [None]
  - BRADYCARDIA [None]
  - ASPIRATION PLEURAL CAVITY [None]
  - PULMONARY OEDEMA [None]
  - PERICARDIAL EFFUSION [None]
  - CARDIOGENIC SHOCK [None]
  - MITRAL VALVE INCOMPETENCE [None]
  - PLEURAL EFFUSION [None]
  - ATRIAL FLUTTER [None]
  - PYREXIA [None]
  - RENAL FAILURE [None]
  - HYPERCHOLESTEROLAEMIA [None]
  - BRONCHITIS [None]
  - CONCOMITANT DISEASE PROGRESSION [None]
  - BLOOD TRIGLYCERIDES ABNORMAL [None]
